FAERS Safety Report 9375000 (Version 1)
Quarter: 2013Q2

REPORT INFORMATION
  Report Type: Spontaneous
  Country: FR (occurrence: FR)
  Receive Date: 20130628
  Receipt Date: 20130628
  Transmission Date: 20140414
  Serious: Yes (Death, Other)
  Sender: FDA-Public Use
  Company Number: PHHY2013FR066640

PATIENT
  Sex: Male

DRUGS (2)
  1. EXELON PATCH [Suspect]
     Dosage: 4.6 MG, UNK
     Route: 062
  2. EXELON PATCH [Suspect]
     Dosage: 4.6 MG, UNK
     Route: 062

REACTIONS (6)
  - Death [Fatal]
  - Femur fracture [Unknown]
  - Fall [Unknown]
  - Gastrointestinal disorder [Unknown]
  - Diarrhoea [Unknown]
  - Vomiting [Unknown]
